FAERS Safety Report 25008161 (Version 1)
Quarter: 2025Q1

REPORT INFORMATION
  Report Type: Report from Study
  Country: US (occurrence: US)
  Receive Date: 20250225
  Receipt Date: 20250225
  Transmission Date: 20250409
  Serious: Yes (Hospitalization, Other)
  Sender: SUNOVION
  Company Number: US-SMPA-2025SPA001987

PATIENT

DRUGS (21)
  1. ORGOVYX [Suspect]
     Active Substance: RELUGOLIX
     Indication: Prostate cancer
     Dosage: 360 MG, SINGLE
     Route: 048
     Dates: start: 20240730, end: 20240730
  2. ORGOVYX [Suspect]
     Active Substance: RELUGOLIX
     Dosage: 120 MG, QD
     Route: 048
     Dates: start: 20240731
  3. ASPIRIN [Concomitant]
     Active Substance: ASPIRIN
     Route: 065
  4. ALLOPURINOL [Concomitant]
     Active Substance: ALLOPURINOL
     Route: 065
  5. VITAMIN B COMPLEX [Concomitant]
     Active Substance: CYANOCOBALAMIN\DEXPANTHENOL\NIACINAMIDE\PYRIDOXINE HYDROCHLORIDE\RIBOFLAVIN 5^-PHOSPHATE SODIUM\THIA
     Route: 065
  6. Centrum adults [Concomitant]
     Route: 065
  7. COLCHICINE [Concomitant]
     Active Substance: COLCHICINE
     Route: 065
  8. FAMOTIDINE [Concomitant]
     Active Substance: FAMOTIDINE
     Route: 065
  9. FIBER THERAPY (CALCIUM POLYCARBOPHIL) [Concomitant]
     Active Substance: CALCIUM POLYCARBOPHIL
     Route: 065
  10. GARLIC [Concomitant]
     Active Substance: GARLIC
     Route: 065
  11. JARDIANCE [Concomitant]
     Active Substance: EMPAGLIFLOZIN
     Route: 065
  12. LINZESS [Concomitant]
     Active Substance: LINACLOTIDE
     Route: 065
  13. LYRICA [Concomitant]
     Active Substance: PREGABALIN
     Route: 065
  14. MELOXICAM [Concomitant]
     Active Substance: MELOXICAM
     Route: 065
  15. METOPROLOL SUCCINATE [Concomitant]
     Active Substance: METOPROLOL SUCCINATE
     Route: 065
  16. OLMESARTAN [Concomitant]
     Active Substance: OLMESARTAN
     Route: 065
  17. ROPINIROLE [Concomitant]
     Active Substance: ROPINIROLE
     Route: 065
  18. ROSUVASTATIN [Concomitant]
     Active Substance: ROSUVASTATIN
     Route: 065
  19. TRIPLE OMEGA 3 6 9 [Concomitant]
     Route: 065
  20. VITAMIN D3 [Concomitant]
     Active Substance: CHOLECALCIFEROL
     Route: 065
  21. ZINC [Concomitant]
     Active Substance: ZINC
     Route: 065

REACTIONS (3)
  - Renal impairment [Unknown]
  - Hypotension [Unknown]
  - Electrolyte imbalance [Unknown]
